FAERS Safety Report 14171921 (Version 1)
Quarter: 2017Q4

REPORT INFORMATION
  Report Type: Spontaneous
  Country: US (occurrence: US)
  Receive Date: 20171108
  Receipt Date: 20171108
  Transmission Date: 20180321
  Serious: No
  Sender: FDA-Public Use
  Company Number: US-ASTRAZENECA-2017SF13273

PATIENT
  Sex: Female
  Weight: 104.3 kg

DRUGS (1)
  1. TUDORZA PRESSAIR [Suspect]
     Active Substance: ACLIDINIUM BROMIDE
     Indication: CHRONIC OBSTRUCTIVE PULMONARY DISEASE
     Route: 055
     Dates: start: 2016

REACTIONS (5)
  - Intentional product misuse [Unknown]
  - Product quality issue [Unknown]
  - Tracheal disorder [Unknown]
  - Wrong technique in device usage process [Unknown]
  - Drug dose omission [Unknown]
